FAERS Safety Report 7829962-7 (Version None)
Quarter: 2011Q4

REPORT INFORMATION
  Report Type: 
  Country: None (occurrence: None)
  Receive Date: 20111021
  Receipt Date: 20110930
  Transmission Date: 20120403
  Serious: Yes (Other)
  Sender: FDA-Public Use
  Company Number: US-BAYER-2011-026181

PATIENT
  Age: 31 Year
  Sex: Female
  Weight: 54.422 kg

DRUGS (11)
  1. YASMIN [Suspect]
     Indication: MENORRHAGIA
     Dosage: UNK UNK, QD
     Route: 048
     Dates: start: 20081022, end: 20090727
  2. YASMIN [Suspect]
     Indication: ORAL CONTRACEPTION
  3. DROSPIRENONE AND ETHINYL ESTRADIOL [Suspect]
     Indication: MENORRHAGIA
  4. PROMETHAZINE [Concomitant]
     Indication: NAUSEA
     Dosage: 25MG HALF TABLET EVERY 6 HOURS AS NEEDED
     Route: 048
     Dates: start: 20090222
  5. DROSPIRENONE AND ETHINYL ESTRADIOL [Suspect]
     Indication: ORAL CONTRACEPTION
     Dosage: UNK UNK, QD
     Dates: start: 20081022, end: 20090727
  6. DESOGEN [Concomitant]
     Dosage: UNK
     Dates: start: 20010101
  7. DESOGEN [Concomitant]
     Dosage: UNK
  8. DROSPIRENONE AND ETHINYL ESTRADIOL [Suspect]
     Indication: PREMENSTRUAL SYNDROME
  9. ACETAMINOPHEN AND OXYCODONE HCL [Concomitant]
     Indication: PAIN
     Dosage: 5MG-325MG TABLETS. ONE TABLET EVERY 6 HOURS AS NEEDED
     Route: 048
     Dates: start: 20090222
  10. YASMIN [Suspect]
     Indication: PREMENSTRUAL SYNDROME
  11. OMEPRAZOLE [Concomitant]
     Dosage: 40 MG, QD

REACTIONS (4)
  - GALLBLADDER DISORDER [None]
  - PAIN [None]
  - CHOLECYSTITIS CHRONIC [None]
  - BILIARY DYSKINESIA [None]
